FAERS Safety Report 12692519 (Version 2)
Quarter: 2016Q4

REPORT INFORMATION
  Report Type: Spontaneous
  Country: DE (occurrence: DE)
  Receive Date: 20160829
  Receipt Date: 20161208
  Transmission Date: 20170207
  Serious: Yes (Congenital Anomaly, Other)
  Sender: FDA-Public Use
  Company Number: DE-BRISTOL-MYERS SQUIBB COMPANY-BMS-2016-070919

PATIENT
  Age: 0 Day
  Sex: Female
  Weight: 2.9 kg

DRUGS (6)
  1. ABILIFY [Suspect]
     Active Substance: ARIPIPRAZOLE
     Indication: PRODUCT USED FOR UNKNOWN INDICATION
     Dosage: 15 MG, QD
     Route: 064
     Dates: start: 201003, end: 20160616
  2. FLORADIX [Concomitant]
     Active Substance: IRON
     Indication: PRODUCT USED FOR UNKNOWN INDICATION
     Dosage: 1 DF, QD
     Route: 064
  3. FLORADIX [Concomitant]
     Active Substance: IRON
     Indication: PRODUCT USED FOR UNKNOWN INDICATION
     Dosage: UNK
     Route: 064
  4. TETESEPT                           /01495601/ [Concomitant]
     Indication: PRODUCT USED FOR UNKNOWN INDICATION
     Dosage: UNK
     Route: 064
  5. FLORADIX [Concomitant]
     Active Substance: IRON
     Indication: PRODUCT USED FOR UNKNOWN INDICATION
     Dosage: UNK
     Route: 064
     Dates: start: 201604
  6. MAGNETRANS                         /01486820/ [Concomitant]
     Indication: PRODUCT USED FOR UNKNOWN INDICATION
     Dosage: 1 DF, UNK
     Route: 064

REACTIONS (5)
  - Spinal disorder [Unknown]
  - Arthropathy [Unknown]
  - Foetal exposure during pregnancy [Unknown]
  - Breech presentation [Unknown]
  - Sympathetic posterior cervical syndrome [Unknown]

NARRATIVE: CASE EVENT DATE: 20160616
